FAERS Safety Report 15722840 (Version 3)
Quarter: 2019Q3

REPORT INFORMATION
  Report Type: Report from Study
  Country: CO (occurrence: CO)
  Receive Date: 20181214
  Receipt Date: 20190708
  Transmission Date: 20191004
  Serious: Yes (Hospitalization)
  Sender: FDA-Public Use
  Company Number: CO-ACTELION-A-CH2018-183626

PATIENT
  Age: 10 Year
  Sex: Female
  Weight: 25 kg

DRUGS (7)
  1. TRACLEER [Suspect]
     Active Substance: BOSENTAN
     Dosage: 62.5 MG, BID
     Route: 048
     Dates: start: 20181003, end: 20181103
  2. TRACLEER [Suspect]
     Active Substance: BOSENTAN
     Indication: PULMONARY ARTERIAL HYPERTENSION
     Dosage: 62.5 MG, BID
     Route: 048
     Dates: start: 20181105, end: 20181208
  3. TRACLEER [Suspect]
     Active Substance: BOSENTAN
     Dosage: 62.5 MG, BID
     Route: 048
     Dates: start: 20190306, end: 201904
  4. TRACLEER [Suspect]
     Active Substance: BOSENTAN
     Dosage: 62.5 MG, BID
     Route: 048
     Dates: start: 2018, end: 20180902
  5. SILDENAFIL. [Concomitant]
     Active Substance: SILDENAFIL
  6. TRACLEER [Suspect]
     Active Substance: BOSENTAN
     Dosage: 62.5 MG, BID
     Route: 048
     Dates: start: 20171101, end: 2018
  7. TRACLEER [Suspect]
     Active Substance: BOSENTAN
     Dosage: 62.5 MG, BID
     Route: 048
     Dates: start: 20190130, end: 20190304

REACTIONS (6)
  - Pyrexia [Recovering/Resolving]
  - Condition aggravated [Not Recovered/Not Resolved]
  - Tonsillitis [Recovering/Resolving]
  - Oxygen saturation decreased [Recovering/Resolving]
  - Pulmonary arterial hypertension [Not Recovered/Not Resolved]
  - Stubbornness [Unknown]

NARRATIVE: CASE EVENT DATE: 201810
